FAERS Safety Report 6103770-X (Version None)
Quarter: 2009Q1

REPORT INFORMATION
  Report Type: 
  Country: None (occurrence: None)
  Receive Date: 20090305
  Receipt Date: 20090221
  Transmission Date: 20090719
  Serious: Yes (Death)
  Sender: FDA-Public Use
  Company Number: IR-ROCHE-615992

PATIENT
  Age: 35 Year
  Sex: Female

DRUGS (5)
  1. ZENAPAX [Suspect]
     Route: 065
  2. CELLCEPT [Suspect]
     Dosage: RECIVED ON DAY 1ST AND 2ND AFTER TRANSPLANTATION
     Route: 048
     Dates: end: 20090101
  3. CELLCEPT [Suspect]
     Dosage: ON DAY 4TH AFTER TRANSPLANTATION; DOSE REDUCED
     Route: 048
  4. CYCLOSPORINE [Concomitant]
     Dosage: ON THE 1ST DAY AFTER TRANSPLANTATION
     Dates: end: 20090101
  5. CYCLOSPORINE [Concomitant]
     Dosage: ON 2ND DAY AFTER TRANSPLANTATION

REACTIONS (2)
  - DISSEMINATED INTRAVASCULAR COAGULATION [None]
  - SEPSIS [None]
